FAERS Safety Report 6163861-4 (Version None)
Quarter: 2009Q2

REPORT INFORMATION
  Report Type: 
  Country: None (occurrence: None)
  Receive Date: 20090422
  Receipt Date: 20090420
  Transmission Date: 20091009
  Serious: Yes (Hospitalization)
  Sender: FDA-Public Use
  Company Number: US-BRISTOL-MYERS SQUIBB COMPANY-14594196

PATIENT

DRUGS (1)
  1. BARACLUDE [Suspect]

REACTIONS (1)
  - MENTAL DISORDER [None]
